FAERS Safety Report 6682041-7 (Version None)
Quarter: 2010Q2

REPORT INFORMATION
  Report Type: 
  Country: None (occurrence: None)
  Receive Date: 20100414
  Receipt Date: 20100414
  Transmission Date: 20101027
  Serious: No
  Sender: FDA-Public Use
  Company Number: None

PATIENT
  Sex: Male
  Weight: 107.5025 kg

DRUGS (3)
  1. OLANZAPINE [Suspect]
     Indication: BIPOLAR DISORDER
     Dosage: HALF TABLET DAILY PO
     Route: 048
     Dates: start: 19950101, end: 20100413
  2. OLANZAPINE [Suspect]
     Indication: SCHIZOPHRENIA
     Dosage: HALF TABLET DAILY PO
     Route: 048
     Dates: start: 19950101, end: 20100413
  3. ABILIFY [Suspect]
     Dosage: HALF TABLET DAILY PO
     Route: 048
     Dates: start: 20070101, end: 20100413

REACTIONS (5)
  - ASTHENIA [None]
  - BONE PAIN [None]
  - EYE PAIN [None]
  - MYALGIA [None]
  - VISUAL IMPAIRMENT [None]
